FAERS Safety Report 14874371 (Version 1)
Quarter: 2018Q2

REPORT INFORMATION
  Report Type: Spontaneous
  Country: JP (occurrence: JP)
  Receive Date: 20180510
  Receipt Date: 20180510
  Transmission Date: 20180711
  Serious: Yes (Other)
  Sender: FDA-Public Use
  Company Number: JP-PFIZER INC-2018189082

PATIENT
  Age: 5 Year
  Sex: Male

DRUGS (1)
  1. MEROPENEM. [Suspect]
     Active Substance: MEROPENEM
     Dosage: 120 MG/KG, DAILY
     Route: 041

REACTIONS (5)
  - Cytopenia [Unknown]
  - Lymphadenopathy [Unknown]
  - Pyrexia [Unknown]
  - Rash [Unknown]
  - Tenderness [Unknown]
